FAERS Safety Report 10691145 (Version 2)
Quarter: 2015Q1

REPORT INFORMATION
  Report Type: Spontaneous
  Country: FR (occurrence: FR)
  Receive Date: 20150105
  Receipt Date: 20150130
  Transmission Date: 20150720
  Serious: Yes (Other)
  Sender: FDA-Public Use
  Company Number: FR-PFIZER INC-2014361710

PATIENT
  Age: 74 Year
  Sex: Female

DRUGS (6)
  1. OXYCONTIN [Concomitant]
     Active Substance: OXYCODONE HYDROCHLORIDE
     Indication: DEVICE RELATED INFECTION
     Dosage: 10 MG, 2X/DAY (MORNING AND EVENING)
     Route: 048
     Dates: start: 20140326
  2. LYRICA [Concomitant]
     Active Substance: PREGABALIN
     Dosage: 25 MG, 2X/DAY (MORNING AND EVENING)
     Route: 048
  3. LOVENOX [Suspect]
     Active Substance: ENOXAPARIN SODIUM
     Indication: DEVICE RELATED INFECTION
     Dosage: 4000 IU, 1X/DAY
     Route: 058
     Dates: start: 20140326, end: 20140415
  4. ZYVOXID [Suspect]
     Active Substance: LINEZOLID
     Indication: DEVICE RELATED INFECTION
     Dosage: 600 MG, 2X/DAY
     Route: 048
     Dates: start: 20140215, end: 20140415
  5. FRAGMIN [Concomitant]
     Active Substance: DALTEPARIN SODIUM
     Dosage: UNK
     Route: 058
     Dates: start: 20140213, end: 20140325
  6. INVANZ [Concomitant]
     Active Substance: ERTAPENEM SODIUM
     Indication: DEVICE RELATED INFECTION
     Dosage: 2 G, 1X/DAY
     Route: 042
     Dates: start: 20140215, end: 20140424

REACTIONS (5)
  - Thrombocytopenia [Recovered/Resolved]
  - Deep vein thrombosis [Recovered/Resolved]
  - Neutropenia [Recovered/Resolved]
  - Anaemia [Recovering/Resolving]
  - Pancytopenia [Recovered/Resolved]

NARRATIVE: CASE EVENT DATE: 20140415
